FAERS Safety Report 10881438 (Version 1)
Quarter: 2015Q1

REPORT INFORMATION
  Report Type: Spontaneous
  Country: US (occurrence: US)
  Receive Date: 20150303
  Receipt Date: 20150303
  Transmission Date: 20150721
  Serious: Yes (Hospitalization)
  Sender: FDA-Public Use
  Company Number: US-ALKERMES INC.-ALK-2015-004271

PATIENT

DRUGS (1)
  1. VIVITROL [Suspect]
     Active Substance: NALTREXONE
     Indication: ALCOHOLISM
     Dosage: 380 MG, UNK
     Route: 030
     Dates: start: 2014

REACTIONS (3)
  - Cerebral haemorrhage [Not Recovered/Not Resolved]
  - Alcohol use [Unknown]
  - Drug abuse [Unknown]

NARRATIVE: CASE EVENT DATE: 20150215
